FAERS Safety Report 4924580-2 (Version None)
Quarter: 2006Q1

REPORT INFORMATION
  Report Type: 
  Country: None (occurrence: None)
  Receive Date: 20060222
  Receipt Date: 20060213
  Transmission Date: 20060701
  Serious: Yes (Other)
  Sender: FDA-Public Use
  Company Number: 2006018832

PATIENT
  Sex: 0

DRUGS (1)
  1. VFEND [Suspect]
     Indication: ASPERGILLOSIS
     Dosage: INTRAVENOUS
     Route: 042

REACTIONS (3)
  - ABNORMAL BEHAVIOUR [None]
  - COMA [None]
  - HALLUCINATION [None]
